FAERS Safety Report 10306516 (Version 3)
Quarter: 2015Q1

REPORT INFORMATION
  Report Type: Spontaneous
  Country: JP (occurrence: JP)
  Receive Date: 20140715
  Receipt Date: 20150220
  Transmission Date: 20150720
  Serious: Yes (Other)
  Sender: FDA-Public Use
  Company Number: JP-BAYER-2014-102196

PATIENT
  Age: 77 Year
  Sex: Male
  Weight: 66 kg

DRUGS (13)
  1. PROTECADIN [Concomitant]
     Active Substance: LAFUTIDINE
     Dosage: DAILY DOSE 20 MG
     Route: 048
  2. L CARTIN [Concomitant]
     Dosage: DAILY DOSE 900 MG
     Route: 048
  3. STIVARGA [Suspect]
     Active Substance: REGORAFENIB
     Indication: RECTAL CANCER
     Dosage: 160 MG, QD
     Route: 048
     Dates: start: 20140108, end: 201402
  4. AZILSARTAN [Concomitant]
     Active Substance: AZILSARTAN KAMEDOXOMIL
     Dosage: DAILY DOSE 40 MG
     Route: 048
  5. LUPRAC [Concomitant]
     Active Substance: TORSEMIDE
     Dosage: DAILY DOSE 4 MG
     Route: 048
  6. STIVARGA [Suspect]
     Active Substance: REGORAFENIB
     Indication: RECTAL CANCER
     Dosage: 160 MG, QD ON FOR 3 WEEKS AND OFF FOR 1 WEEK
     Route: 048
     Dates: start: 20130930, end: 20131215
  7. STIVARGA [Suspect]
     Active Substance: REGORAFENIB
     Indication: RECTAL CANCER
     Dosage: 80 MG, QD
     Route: 048
     Dates: start: 20140514, end: 20140603
  8. STIVARGA [Suspect]
     Active Substance: REGORAFENIB
     Indication: RECTAL CANCER
     Dosage: 120 MG, QD
     Route: 048
     Dates: start: 20140404, end: 20140424
  9. STIVARGA [Suspect]
     Active Substance: REGORAFENIB
     Indication: RECTAL CANCER
     Dosage: 160 MG, QD
     Route: 048
     Dates: start: 20141119, end: 20141209
  10. ALDACTONE [Concomitant]
     Active Substance: SPIRONOLACTONE
     Dosage: DAILY DOSE 25 MG
     Route: 048
  11. STIVARGA [Suspect]
     Active Substance: REGORAFENIB
     Indication: RECTAL CANCER
     Dosage: 160 MG, QD
     Route: 048
     Dates: start: 201402, end: 20140225
  12. AMLODIN [Concomitant]
     Active Substance: AMLODIPINE BESYLATE
     Dosage: DAILY DOSE 10 MG
     Route: 048
  13. ATORVASTATIN [Concomitant]
     Active Substance: ATORVASTATIN
     Dosage: DAILY DOSE 5 MG
     Route: 048

REACTIONS (3)
  - Oedema peripheral [Unknown]
  - Proteinuria [Not Recovered/Not Resolved]
  - Nephrotic syndrome [Recovering/Resolving]

NARRATIVE: CASE EVENT DATE: 20140304
